FAERS Safety Report 5507241-0 (Version None)
Quarter: 2007Q4

REPORT INFORMATION
  Report Type: 
  Country: None (occurrence: None)
  Receive Date: 20071105
  Receipt Date: 20071105
  Transmission Date: 20080405
  Serious: Yes (Other)
  Sender: FDA-Public Use
  Company Number: None

PATIENT
  Sex: Male

DRUGS (11)
  1. REVLIMID [Suspect]
     Indication: MULTIPLE MYELOMA
     Dosage: 10MG DAILY PO
     Route: 048
     Dates: start: 20070907, end: 20071004
  2. GABAPENTIN [Concomitant]
  3. ZETIA [Concomitant]
  4. PLAVIX [Concomitant]
  5. OMEPRAZOLE [Concomitant]
  6. COZAAR [Concomitant]
  7. LEVITRA [Concomitant]
  8. ZOLPIDEM TARTRATE [Concomitant]
  9. DEXAMETHASONE [Concomitant]
  10. AREDIA [Concomitant]
  11. TESTOSTERONE [Concomitant]

REACTIONS (7)
  - DEPRESSION [None]
  - DIARRHOEA [None]
  - DRUG INEFFECTIVE [None]
  - MUSCLE SPASMS [None]
  - NEUROPATHY [None]
  - PARAESTHESIA [None]
  - SLEEP DISORDER [None]
